FAERS Safety Report 4332056-9 (Version None)
Quarter: 2004Q1

REPORT INFORMATION
  Report Type: 
  Country: None (occurrence: None)
  Receive Date: 20040330
  Receipt Date: 20040312
  Transmission Date: 20041129
  Serious: Yes (Death)
  Sender: FDA-Public Use
  Company Number: B0326527A

PATIENT
  Age: 64 Year
  Sex: Female

DRUGS (1)
  1. AMOXIL [Suspect]
     Indication: PNEUMONIA PNEUMOCOCCAL

REACTIONS (2)
  - MULTI-ORGAN FAILURE [None]
  - TOXIC EPIDERMAL NECROLYSIS [None]
